FAERS Safety Report 12525028 (Version 1)
Quarter: 2016Q3

REPORT INFORMATION
  Report Type: Spontaneous
  Country: US (occurrence: US)
  Receive Date: 20160704
  Receipt Date: 20160704
  Transmission Date: 20161109
  Serious: Yes (Other)
  Sender: FDA-Public Use
  Company Number: US-TEVA-672643USA

PATIENT
  Sex: Female

DRUGS (1)
  1. ZECUITY [Suspect]
     Active Substance: SUMATRIPTAN SUCCINATE
     Route: 062
     Dates: start: 20160618, end: 20160618

REACTIONS (6)
  - Application site burn [Recovering/Resolving]
  - Application site pain [Recovered/Resolved]
  - Erythema [Recovering/Resolving]
  - Application site urticaria [Recovered/Resolved]
  - Skin exfoliation [Recovered/Resolved]
  - Application site pruritus [Recovered/Resolved]

NARRATIVE: CASE EVENT DATE: 2016
